FAERS Safety Report 10803187 (Version 2)
Quarter: 2016Q2

REPORT INFORMATION
  Report Type: Spontaneous
  Country: US (occurrence: US)
  Receive Date: 20150217
  Receipt Date: 20160621
  Transmission Date: 20160815
  Serious: Yes (Other)
  Sender: FDA-Public Use
  Company Number: US-JNJFOC-20150211525

PATIENT
  Sex: Male

DRUGS (11)
  1. MAGNESIUM OXIDE. [Concomitant]
     Active Substance: MAGNESIUM OXIDE
  2. ISOSORBIDE. [Concomitant]
     Active Substance: ISOSORBIDE
  3. METOPROLOL. [Concomitant]
     Active Substance: METOPROLOL
  4. TRAMADOL. [Concomitant]
     Active Substance: TRAMADOL
  5. DEXAMETHASONE. [Concomitant]
     Active Substance: DEXAMETHASONE
  6. SINGULAIR [Concomitant]
     Active Substance: MONTELUKAST SODIUM
  7. CYTOXAN [Concomitant]
     Active Substance: CYCLOPHOSPHAMIDE
  8. LOVASTATIN. [Concomitant]
     Active Substance: LOVASTATIN
  9. KLOR-CON [Concomitant]
     Active Substance: POTASSIUM CHLORIDE
  10. IMBRUVICA [Suspect]
     Active Substance: IBRUTINIB
     Indication: WALDENSTROM^S MACROGLOBULINAEMIA
     Route: 048
     Dates: start: 20141210
  11. RITUXAN [Concomitant]
     Active Substance: RITUXIMAB

REACTIONS (2)
  - Epistaxis [Unknown]
  - Platelet count decreased [Recovering/Resolving]
